FAERS Safety Report 25398225 (Version 1)
Quarter: 2025Q2

REPORT INFORMATION
  Report Type: Spontaneous
  Country: US (occurrence: US)
  Receive Date: 20250604
  Receipt Date: 20250604
  Transmission Date: 20250717
  Serious: No
  Sender: SANOFI AVENTIS
  Company Number: US-SA-2025SA158476

PATIENT
  Sex: Female
  Weight: 65.91 kg

DRUGS (10)
  1. DUPIXENT [Suspect]
     Active Substance: DUPILUMAB
     Indication: Dermatitis atopic
     Dosage: 300 MG, QOW
     Route: 058
  2. CREATINE [Concomitant]
     Active Substance: CREATINE
  3. VTAMA [Concomitant]
     Active Substance: TAPINAROF
  4. CIBINQO [Concomitant]
     Active Substance: ABROCITINIB
  5. MAGNESIUM [Concomitant]
     Active Substance: MAGNESIUM
  6. CHOLECALCIFEROL\FISH OIL [Concomitant]
     Active Substance: CHOLECALCIFEROL\FISH OIL
  7. WELLBUTRIN SR [Concomitant]
     Active Substance: BUPROPION HYDROCHLORIDE
  8. DROSPIRENONE AND ETHINYL ESTRADIOL [Concomitant]
     Active Substance: DROSPIRENONE\ETHINYL ESTRADIOL
  9. FLUOCINONIDE [Concomitant]
     Active Substance: FLUOCINONIDE
  10. TRIAMCINOLONE ACETONIDE [Concomitant]
     Active Substance: TRIAMCINOLONE ACETONIDE

REACTIONS (1)
  - Rash [Not Recovered/Not Resolved]
